FAERS Safety Report 15979837 (Version 1)
Quarter: 2019Q1

REPORT INFORMATION
  Report Type: Spontaneous
  Country: ES (occurrence: ES)
  Receive Date: 20190219
  Receipt Date: 20190219
  Transmission Date: 20190418
  Serious: Yes (Hospitalization)
  Sender: FDA-Public Use
  Company Number: ES-ACCORD-108157

PATIENT
  Age: 28 Year
  Sex: Male
  Weight: 83 kg

DRUGS (4)
  1. QUETIAPINE. [Suspect]
     Active Substance: QUETIAPINE
     Route: 048
     Dates: start: 20171025, end: 20180105
  2. GABAPENTIN. [Suspect]
     Active Substance: GABAPENTIN
     Route: 048
     Dates: start: 20170922, end: 20180105
  3. HIDROXIL [Concomitant]
     Active Substance: ALUMINUM HYDROXIDE
     Dosage: 30 TABLETS
     Route: 048
     Dates: start: 20170922, end: 20180105
  4. ANTABUS [Suspect]
     Active Substance: DISULFIRAM
     Dosage: STRENGTH 250 MG,40 TABLETS
     Route: 048
     Dates: start: 20171026, end: 20180105

REACTIONS (3)
  - Hepatitis [Recovering/Resolving]
  - Hyperbilirubinaemia [Unknown]
  - Drug abuse [Unknown]

NARRATIVE: CASE EVENT DATE: 20180106
